FAERS Safety Report 9279088 (Version 1)
Quarter: 2013Q2

REPORT INFORMATION
  Report Type: Spontaneous
  Country: US (occurrence: US)
  Receive Date: 20130508
  Receipt Date: 20130508
  Transmission Date: 20140414
  Serious: No
  Sender: FDA-Public Use
  Company Number: US-PFIZER INC-2013141398

PATIENT
  Sex: Female

DRUGS (3)
  1. MEDROL [Suspect]
     Indication: BACK PAIN
     Dosage: UNK
  2. VENLAFAXINE HCL [Suspect]
     Indication: BACK PAIN
     Dosage: UNK
  3. DICLOFENAC EPOLAMINE [Suspect]
     Indication: BACK PAIN
     Dosage: UNK

REACTIONS (9)
  - Off label use [Unknown]
  - Inflammation [Unknown]
  - Bedridden [Unknown]
  - Musculoskeletal stiffness [Unknown]
  - Joint swelling [Unknown]
  - Muscle spasms [Unknown]
  - Neuralgia [Unknown]
  - Pain [Unknown]
  - Arthralgia [Unknown]
